FAERS Safety Report 5246312-3 (Version None)
Quarter: 2007Q1

REPORT INFORMATION
  Report Type: 
  Country: None (occurrence: None)
  Receive Date: 20061201
  Receipt Date: 20060726
  Transmission Date: 20070707
  Serious: No
  Sender: FDA-Public Use
  Company Number: 2006PV018275

PATIENT
  Age: 53 Year
  Sex: Female
  Weight: 104.3273 kg

DRUGS (4)
  1. BYETTA [Suspect]
     Indication: DIABETES MELLITUS NON-INSULIN-DEPENDENT
     Dosage: 5 MCG; BID; SC
     Route: 058
     Dates: start: 20060711
  2. DILTIAZEM [Suspect]
     Indication: HYPERTENSION
     Dosage: 240 MG; QD; PO
     Route: 048
     Dates: start: 20060718
  3. GLUCOPHAGE ^BRISTO-MYERS SQUIBB^ [Concomitant]
  4. ACTOS /USA/ [Concomitant]

REACTIONS (2)
  - DIZZINESS [None]
  - DRUG INEFFECTIVE FOR UNAPPROVED INDICATION [None]
